FAERS Safety Report 10079494 (Version 1)
Quarter: 2014Q2

REPORT INFORMATION
  Report Type: Spontaneous
  Country: US (occurrence: US)
  Receive Date: 20140415
  Receipt Date: 20140415
  Transmission Date: 20141212
  Serious: No
  Sender: FDA-Public Use
  Company Number: US-PFIZER INC-2014099917

PATIENT
  Sex: Female

DRUGS (1)
  1. XALKORI [Suspect]
     Indication: OVARIAN CANCER
     Dosage: UNK

REACTIONS (3)
  - Off label use [Unknown]
  - Disease progression [Unknown]
  - Ovarian cancer [Unknown]
